FAERS Safety Report 21479327 (Version 22)
Quarter: 2023Q2

REPORT INFORMATION
  Report Type: Report from Study
  Country: NL (occurrence: None)
  Receive Date: 20221019
  Receipt Date: 20230524
  Transmission Date: 20230721
  Serious: Yes (Hospitalization)
  Sender: FDA-Public Use
  Company Number: NL-Eisai Medical Research-EC-2022-125980

PATIENT
  Age: 60 Year
  Sex: Male
  Weight: 75.6 kg

DRUGS (8)
  1. LENVATINIB [Suspect]
     Active Substance: LENVATINIB
     Indication: Gallbladder adenocarcinoma
     Route: 048
     Dates: start: 20220919, end: 20221010
  2. LENVATINIB [Suspect]
     Active Substance: LENVATINIB
     Route: 048
     Dates: start: 20221109, end: 20221109
  3. PEMBROLIZUMAB [Suspect]
     Active Substance: PEMBROLIZUMAB
     Indication: Gallbladder adenocarcinoma
     Route: 041
     Dates: start: 20220919, end: 20220919
  4. BELZUTIFAN [Suspect]
     Active Substance: BELZUTIFAN
     Indication: Gallbladder adenocarcinoma
     Route: 048
     Dates: start: 20220919, end: 20221010
  5. BELZUTIFAN [Suspect]
     Active Substance: BELZUTIFAN
     Route: 048
     Dates: start: 20221109, end: 20221109
  6. PANTOZOL [Concomitant]
     Active Substance: PANTOPRAZOLE SODIUM
     Dates: start: 20220927
  7. SIMVASTATIN [Concomitant]
     Active Substance: SIMVASTATIN
     Dates: start: 201701, end: 20221011
  8. ACETAMINOPHEN [Concomitant]
     Active Substance: ACETAMINOPHEN
     Dates: start: 20220927

REACTIONS (2)
  - Hepatic failure [Recovered/Resolved]
  - Lacunar infarction [Recovered/Resolved with Sequelae]

NARRATIVE: CASE EVENT DATE: 20221009
